FAERS Safety Report 10402541 (Version 1)
Quarter: 2014Q3

REPORT INFORMATION
  Report Type: Spontaneous
  Country: US (occurrence: None)
  Receive Date: 20140821
  Receipt Date: 20140821
  Transmission Date: 20150326
  Serious: Yes (Death)
  Sender: FDA-Public Use
  Company Number: None

PATIENT
  Age: 56 Year
  Sex: Male
  Weight: 90.9 kg

DRUGS (10)
  1. PROAIR HFA [Concomitant]
     Active Substance: ALBUTEROL SULFATE
  2. ERBITUX [Suspect]
     Active Substance: CETUXIMAB
  3. NORCO [Concomitant]
     Active Substance: ACETAMINOPHEN\HYDROCODONE BITARTRATE
  4. LISIONOPRIL [Concomitant]
  5. NYSTATIN. [Concomitant]
     Active Substance: NYSTATIN
  6. DULERA [Concomitant]
     Active Substance: FORMOTEROL FUMARATE DIHYDRATE\MOMETASONE FUROATE
  7. CLINDAMYCIN TOPICAL [Concomitant]
  8. MAG-OX [Concomitant]
  9. FENTANYL TRANSDERMAL SYSTEM [Concomitant]
     Active Substance: FENTANYL
  10. ZOFRAN [Concomitant]
     Active Substance: ONDANSETRON HYDROCHLORIDE

REACTIONS (10)
  - Nausea [None]
  - Dysphagia [None]
  - Constipation [None]
  - Unresponsive to stimuli [None]
  - Hypomagnesaemia [None]
  - Dehydration [None]
  - Cardiac arrest [None]
  - Mucosal inflammation [None]
  - Pain [None]
  - Vomiting [None]

NARRATIVE: CASE EVENT DATE: 20140809
